FAERS Safety Report 7933829-3 (Version None)
Quarter: 2011Q4

REPORT INFORMATION
  Report Type: 
  Country: None (occurrence: None)
  Receive Date: 20111122
  Receipt Date: 20111115
  Transmission Date: 20120403
  Serious: Yes (Other)
  Sender: FDA-Public Use
  Company Number: PHEH2011US01195

PATIENT
  Sex: Female
  Weight: 68.027 kg

DRUGS (11)
  1. METHYLPHENIDATE [Suspect]
     Dosage: 10 MG, UNK
     Route: 048
  2. KLONOPIN [Concomitant]
     Indication: FIBROMYALGIA
     Dosage: 0.5 MG, UNK
     Dates: start: 20110401
  3. CALCIUM CARBONATE [Concomitant]
     Dosage: 600 DF, UNK
  4. LYRICA [Concomitant]
     Indication: FIBROMYALGIA
     Dosage: 150 MG, BID
     Dates: start: 20110401
  5. GILENYA [Suspect]
     Indication: MULTIPLE SCLEROSIS
     Dosage: 0.5 MG, QD
     Route: 048
     Dates: start: 20110208, end: 20110824
  6. MIRALAX [Concomitant]
     Dosage: UNK UKN, OT
  7. NUVIGIL [Concomitant]
     Dosage: 150 MG, UNK
  8. CELEBREX [Concomitant]
     Indication: FIBROMYALGIA
     Dosage: 200 MG, QD
     Dates: start: 20110401
  9. CYMBALTA [Concomitant]
     Indication: FIBROMYALGIA
     Dosage: 120 MG, QD
     Dates: start: 20110401
  10. ASPIRIN [Concomitant]
     Dosage: 81 MG, UNK
  11. PERCOCET [Concomitant]
     Dosage: 5-325 MG, UNK

REACTIONS (4)
  - STAPHYLOCOCCAL INFECTION [None]
  - HERPES ZOSTER [None]
  - RASH [None]
  - FUNGAL INFECTION [None]
